FAERS Safety Report 7196529-6 (Version None)
Quarter: 2010Q4

REPORT INFORMATION
  Report Type: 
  Country: None (occurrence: None)
  Receive Date: 20101223
  Receipt Date: 20101026
  Transmission Date: 20110411
  Serious: No
  Sender: FDA-Public Use
  Company Number: US-AMGEN-KDL440536

PATIENT

DRUGS (8)
  1. ENBREL [Suspect]
     Indication: RHEUMATOID ARTHRITIS
     Dosage: 50 MG, QWK
     Route: 058
     Dates: start: 20100817
  2. ARAVA [Concomitant]
  3. CETIRIZINE HYDROCHLORIDE [Concomitant]
     Dosage: 5 MG, UNK
  4. TUMS [Concomitant]
     Dosage: 500 MG, UNK
  5. ERGOCALCIFEROL [Concomitant]
     Dosage: 1000 IU, UNK
  6. FISH OIL [Concomitant]
     Dosage: UNK UNK, UNK
  7. COENZYME Q10 [Concomitant]
     Dosage: 10 MG, UNK
  8. LYSINE [Concomitant]
     Dosage: 500 MG, UNK

REACTIONS (3)
  - INJECTION SITE ERYTHEMA [None]
  - INJECTION SITE PRURITUS [None]
  - INJECTION SITE REACTION [None]
